FAERS Safety Report 22060303 (Version 1)
Quarter: 2023Q1

REPORT INFORMATION
  Report Type: Spontaneous
  Country: CN (occurrence: CN)
  Receive Date: 20230303
  Receipt Date: 20230303
  Transmission Date: 20230417
  Serious: Yes (Hospitalization, Other)
  Sender: FDA-Public Use
  Company Number: CN-009507513-2303CHN000391

PATIENT
  Age: 71 Year
  Sex: Female

DRUGS (4)
  1. KEYTRUDA [Suspect]
     Active Substance: PEMBROLIZUMAB
     Indication: Nasopharyngeal cancer
     Dosage: 200 MILLIGRAM, ONCE (1/DAY)
     Route: 041
     Dates: start: 20230214, end: 20230214
  2. CARBOPLATIN [Suspect]
     Active Substance: CARBOPLATIN
     Indication: Nasopharyngeal cancer
     Dosage: 550 MILLIGRAM, ONCE (1/DAY)
     Route: 041
     Dates: start: 20230214, end: 20230214
  3. PACLITAXEL [Suspect]
     Active Substance: PACLITAXEL
     Indication: Nasopharyngeal cancer
     Dosage: 210 MILLIGRAM, ONCE (1/DAY)
     Route: 041
     Dates: start: 20230214, end: 20230214
  4. BEVACIZUMAB [Suspect]
     Active Substance: BEVACIZUMAB
     Indication: Nasopharyngeal cancer
     Dosage: 530 MILLIGRAM, ONCE (1/DAY)
     Route: 041
     Dates: start: 20230214, end: 20230214

REACTIONS (5)
  - Myelosuppression [Recovering/Resolving]
  - White blood cell count decreased [Recovering/Resolving]
  - Haemoglobin decreased [Recovering/Resolving]
  - Neutrophil count decreased [Recovering/Resolving]
  - Platelet count decreased [Not Recovered/Not Resolved]

NARRATIVE: CASE EVENT DATE: 20230220
